FAERS Safety Report 24015758 (Version 2)
Quarter: 2024Q3

REPORT INFORMATION
  Report Type: Spontaneous
  Country: IT (occurrence: IT)
  Receive Date: 20240626
  Receipt Date: 20240701
  Transmission Date: 20241017
  Serious: Yes (Other)
  Sender: PFIZER
  Company Number: None

PATIENT
  Age: 62 Year
  Sex: Male
  Weight: 95 kg

DRUGS (8)
  1. LINEZOLID [Suspect]
     Active Substance: LINEZOLID
     Indication: Cerebrospinal fluid drainage
     Dosage: 1500 MG, DAILY (600 MILLIGRAMS MORNING AND 900 MG EVENING)
     Route: 048
     Dates: start: 20240614, end: 20240617
  2. FOSFOMYCIN SODIUM [Suspect]
     Active Substance: FOSFOMYCIN SODIUM
     Indication: Infection
     Dosage: 8 G OF LOAD AND 16 G IN 24 HOURS
     Route: 042
     Dates: start: 20240606, end: 20240617
  3. EN [Suspect]
     Active Substance: DELORAZEPAM
     Indication: Agitation
     Dosage: 13 GTT
     Route: 048
     Dates: start: 20240616, end: 20240617
  4. NEUPRO [Concomitant]
     Active Substance: ROTIGOTINE
     Indication: Parkinsonism
     Dosage: 6 MG
     Route: 062
  5. IRBESARTAN [Concomitant]
     Active Substance: IRBESARTAN
     Indication: Hypertension
     Dosage: 150 MG
     Route: 048
     Dates: start: 20240605
  6. SELEGILINA [SELEGILINE] [Concomitant]
     Indication: Parkinsonism
     Dosage: 10 MG
     Route: 048
  7. LEVODOPA [Concomitant]
     Active Substance: LEVODOPA
     Indication: Parkinsonism
     Dosage: LEVODOPA BENSERAZIDE 200 MG +50 MG HALF TABLET 7:00 11:00 13:00 19:00
  8. ALFUZOSIN HYDROCHLORIDE [Concomitant]
     Active Substance: ALFUZOSIN HYDROCHLORIDE
     Indication: Prostatomegaly
     Dosage: 10 MG
     Route: 048

REACTIONS (4)
  - Hallucination [Recovered/Resolved]
  - Agitation [Recovered/Resolved]
  - Disorientation [Recovering/Resolving]
  - Off label use [Unknown]

NARRATIVE: CASE EVENT DATE: 20240614
